FAERS Safety Report 19471884 (Version 2)
Quarter: 2021Q3

REPORT INFORMATION
  Report Type: Spontaneous
  Country: CN (occurrence: CN)
  Receive Date: 20210629
  Receipt Date: 20210702
  Transmission Date: 20211014
  Serious: No
  Sender: FDA-Public Use
  Company Number: CN-GLAXOSMITHKLINE-CN2021APC138862

PATIENT
  Age: 50 Year
  Sex: Male
  Weight: 74 kg

DRUGS (2)
  1. VENTOLIN [Suspect]
     Active Substance: ALBUTEROL SULFATE
     Indication: DYSPNOEA
  2. VENTOLIN [Suspect]
     Active Substance: ALBUTEROL SULFATE
     Indication: DYSPNOEA
     Dosage: 5 MG, BID
     Route: 055
     Dates: start: 20210527, end: 20210528

REACTIONS (1)
  - Palpitations [Recovering/Resolving]

NARRATIVE: CASE EVENT DATE: 20210528
